FAERS Safety Report 7483118-9 (Version None)
Quarter: 2011Q2

REPORT INFORMATION
  Report Type: 
  Country: None (occurrence: None)
  Receive Date: 20110516
  Receipt Date: 20100421
  Transmission Date: 20111010
  Serious: Yes (Other)
  Sender: FDA-Public Use
  Company Number: DE-GENENTECH-318530

PATIENT
  Age: 73 Year

DRUGS (1)
  1. LUCENTIS [Suspect]
     Indication: MACULAR DEGENERATION
     Dosage: UNK
     Route: 031
     Dates: start: 20090618

REACTIONS (8)
  - VISUAL IMPAIRMENT [None]
  - OCULAR DISCOMFORT [None]
  - CIRCULATORY COLLAPSE [None]
  - EYE HAEMORRHAGE [None]
  - HAEMATOMA [None]
  - CEREBRAL HAEMORRHAGE [None]
  - DRY EYE [None]
  - HEAD DISCOMFORT [None]
